FAERS Safety Report 13177153 (Version 2)
Quarter: 2017Q3

REPORT INFORMATION
  Report Type: Report from Study
  Country: US (occurrence: US)
  Receive Date: 20170201
  Receipt Date: 20170731
  Transmission Date: 20171127
  Serious: No
  Sender: FDA-Public Use
  Company Number: US-EXELIXIS-CABO-16007278

PATIENT
  Sex: Male

DRUGS (2)
  1. CABOMETYX [Suspect]
     Active Substance: CABOZANTINIB S-MALATE
     Indication: RENAL CANCER
     Dosage: 60 MG, 2X^S WEEKLY
     Route: 048
     Dates: start: 201606
  2. ENERGY SUPPORT [Concomitant]

REACTIONS (2)
  - Blister [Not Recovered/Not Resolved]
  - Pain in extremity [Unknown]
